FAERS Safety Report 4998310-2 (Version None)
Quarter: 2006Q2

REPORT INFORMATION
  Report Type: 
  Country: None (occurrence: None)
  Receive Date: 20060508
  Receipt Date: 20060424
  Transmission Date: 20061013
  Serious: Yes (Other)
  Sender: FDA-Public Use
  Company Number: 2006US-02130

PATIENT
  Age: 46 Year
  Sex: Female
  Weight: 63.5 kg

DRUGS (2)
  1. LORAZEPAM [Suspect]
     Dosage: 2 MG, QD, ORAL
     Route: 048
     Dates: start: 20060101, end: 20060102
  2. CLONAZEPAM [Suspect]
     Dosage: 2 MG, QD, ORAL
     Route: 048
     Dates: start: 20060101, end: 20060102

REACTIONS (2)
  - DRUG INEFFECTIVE [None]
  - POOR QUALITY DRUG ADMINISTERED [None]
